FAERS Safety Report 24677075 (Version 2)
Quarter: 2025Q3

REPORT INFORMATION
  Report Type: Report from Study
  Country: EU (occurrence: EU)
  Receive Date: 20241129
  Receipt Date: 20250809
  Transmission Date: 20251021
  Serious: Yes (Other)
  Sender: ALEXION PHARMACEUTICALS
  Company Number: EU-AstraZeneca-CH-00754995A

PATIENT
  Age: 71 Year
  Sex: Female

DRUGS (1)
  1. OSIMERTINIB [Suspect]
     Active Substance: OSIMERTINIB

REACTIONS (9)
  - Asthenia [Unknown]
  - Fatigue [Unknown]
  - Anaemia [Unknown]
  - Trichorrhexis [Unknown]
  - Nail disorder [Unknown]
  - Dysentery [Unknown]
  - Skin fissures [Unknown]
  - Temperature intolerance [Unknown]
  - Mood swings [Unknown]
